FAERS Safety Report 13080213 (Version 2)
Quarter: 2017Q1

REPORT INFORMATION
  Report Type: Spontaneous
  Country: US (occurrence: US)
  Receive Date: 20170103
  Receipt Date: 20170104
  Transmission Date: 20170428
  Serious: Yes (Other)
  Sender: FDA-Public Use
  Company Number: US-PFIZER INC-2016602737

PATIENT
  Sex: Male

DRUGS (1)
  1. EFFEXOR XR [Suspect]
     Active Substance: VENLAFAXINE HYDROCHLORIDE
     Dosage: UNK

REACTIONS (6)
  - Somnolence [Unknown]
  - Loss of consciousness [Unknown]
  - Activities of daily living impaired [Unknown]
  - Gambling [Unknown]
  - Suicide attempt [Unknown]
  - Intentional overdose [Unknown]
